FAERS Safety Report 12601957 (Version 1)
Quarter: 2016Q3

REPORT INFORMATION
  Report Type: Spontaneous
  Country: US (occurrence: US)
  Receive Date: 20160728
  Receipt Date: 20160728
  Transmission Date: 20161109
  Serious: Yes (Hospitalization)
  Sender: FDA-Public Use
  Company Number: US-TAIHO ONCOLOGY INC-EU-2016-01750

PATIENT
  Age: 67 Year
  Sex: Male

DRUGS (7)
  1. PROTONIX [Concomitant]
     Active Substance: PANTOPRAZOLE SODIUM
     Dosage: NI
  2. BACLOFEN. [Concomitant]
     Active Substance: BACLOFEN
     Dosage: NI
  3. OXYCODONE [Concomitant]
     Active Substance: OXYCODONE
     Dosage: NI
  4. LONSURF [Suspect]
     Active Substance: TIPIRACIL HYDROCHLORIDE\TRIFLURIDINE
     Indication: COLON CANCER
     Route: 048
     Dates: start: 20160323
  5. GABAPENTIN. [Concomitant]
     Active Substance: GABAPENTIN
     Dosage: NI
  6. MIDODRINE [Concomitant]
     Active Substance: MIDODRINE
     Dosage: NI
  7. PROCHLORPERAZINE. [Concomitant]
     Active Substance: PROCHLORPERAZINE
     Dosage: NI

REACTIONS (1)
  - Hospitalisation [Unknown]

NARRATIVE: CASE EVENT DATE: 201607
